FAERS Safety Report 6125930-4 (Version None)
Quarter: 2009Q1

REPORT INFORMATION
  Report Type: 
  Country: None (occurrence: None)
  Receive Date: 20090318
  Receipt Date: 20090304
  Transmission Date: 20090719
  Serious: Yes (Hospitalization)
  Sender: FDA-Public Use
  Company Number: 2009AL001426

PATIENT
  Age: 2 Year
  Sex: Male

DRUGS (1)
  1. FEVERALL [Suspect]
     Indication: PYREXIA
     Dosage: 250 MG, Q4H; REC
     Route: 054

REACTIONS (2)
  - DIARRHOEA [None]
  - DRUG INEFFECTIVE [None]
